FAERS Safety Report 24111956 (Version 1)
Quarter: 2024Q3

REPORT INFORMATION
  Report Type: Spontaneous
  Country: GB (occurrence: GB)
  Receive Date: 20240718
  Receipt Date: 20240718
  Transmission Date: 20241016
  Serious: Yes (Hospitalization, Other)
  Sender: PFIZER
  Company Number: None

PATIENT
  Weight: 73 kg

DRUGS (8)
  1. TRANEXAMIC ACID [Suspect]
     Active Substance: TRANEXAMIC ACID
     Dosage: UNK
  2. PARECOXIB SODIUM [Suspect]
     Active Substance: PARECOXIB SODIUM
     Dosage: UNK
  3. DEXAMETHASONE SODIUM PHOSPHATE [Suspect]
     Active Substance: DEXAMETHASONE PHOSPHATE\DEXAMETHASONE SODIUM PHOSPHATE
     Dosage: UNK
  4. FENTANYL [Suspect]
     Active Substance: FENTANYL\FENTANYL CITRATE
     Dosage: UNK
  5. MIDAZOLAM [Suspect]
     Active Substance: MIDAZOLAM
     Dosage: UNK
  6. METARAMINOL [Suspect]
     Active Substance: METARAMINOL
     Indication: Hypotension
     Dosage: UNK
  7. OXYTOCIN [Suspect]
     Active Substance: OXYTOCIN
     Dosage: UNK
  8. NITROFURANTOIN [Concomitant]
     Active Substance: NITROFURANTOIN
     Dosage: UNK
     Dates: start: 20240626, end: 20240703

REACTIONS (2)
  - Partial seizures [Recovered/Resolved]
  - Postictal paralysis [Recovered/Resolved]
